FAERS Safety Report 6416371-0 (Version None)
Quarter: 2009Q4

REPORT INFORMATION
  Report Type: 
  Country: None (occurrence: None)
  Receive Date: 20091023
  Receipt Date: 20091014
  Transmission Date: 20100525
  Serious: Yes (Hospitalization)
  Sender: FDA-Public Use
  Company Number: MSER20090050

PATIENT
  Sex: Female

DRUGS (1)
  1. MORPHINE SULFATE [Suspect]
     Indication: PAIN MANAGEMENT
     Dosage: 20 UG/KG PER ORAL
     Route: 048

REACTIONS (6)
  - BLADDER DILATATION [None]
  - HYDRONEPHROSIS [None]
  - HYPERKALAEMIA [None]
  - NEONATAL HYPONATRAEMIA [None]
  - OEDEMA NEONATAL [None]
  - RENAL IMPAIRMENT [None]
